FAERS Safety Report 18636926 (Version 2)
Quarter: 2021Q2

REPORT INFORMATION
  Report Type: Other
  Country: US (occurrence: US)
  Receive Date: 20201218
  Receipt Date: 20210511
  Transmission Date: 20210717
  Serious: Yes (Hospitalization, Other)
  Sender: FDA-Public Use
  Company Number: US-AMAG PHARMACEUTICALS, INC.-AMAG202003924

PATIENT
  Age: 0 Year
  Sex: Male
  Weight: 2.12 kg

DRUGS (1)
  1. MAKENA [Suspect]
     Active Substance: HYDROXYPROGESTERONE CAPROATE
     Indication: FOETAL EXPOSURE DURING PREGNANCY
     Route: 064
     Dates: start: 20200831, end: 20201019

REACTIONS (2)
  - Nonreassuring foetal heart rate pattern [Unknown]
  - Premature baby [Unknown]

NARRATIVE: CASE EVENT DATE: 2020
